FAERS Safety Report 10146951 (Version 1)
Quarter: 2014Q2

REPORT INFORMATION
  Report Type: Spontaneous
  Country: CA (occurrence: CA)
  Receive Date: 20140501
  Receipt Date: 20140501
  Transmission Date: 20141212
  Serious: Yes (Other)
  Sender: FDA-Public Use
  Company Number: CA-GLAXOSMITHKLINE-A1070732A

PATIENT
  Sex: Male

DRUGS (6)
  1. ADVAIR HFA [Suspect]
     Indication: COUGH
     Dosage: 2PUFF TWICE PER DAY
     Route: 055
     Dates: start: 20140416
  2. VENTOLIN [Suspect]
     Indication: PRODUCT USED FOR UNKNOWN INDICATION
     Dosage: 125MG TWICE PER DAY
     Route: 065
  3. FLOVENT [Suspect]
     Indication: PRODUCT USED FOR UNKNOWN INDICATION
     Dosage: 2PUFF TWICE PER DAY
     Route: 065
     Dates: end: 20140416
  4. ELTOR [Suspect]
     Indication: INFLUENZA
     Route: 065
  5. NASONEX SPRAY [Suspect]
     Indication: INFLUENZA
     Dosage: 2SPR TWICE PER DAY
     Route: 065
  6. BIAXIN [Suspect]
     Indication: INFLUENZA
     Dosage: 500MG TWICE PER DAY
     Route: 065

REACTIONS (4)
  - Tracheal oedema [Not Recovered/Not Resolved]
  - Cough [Not Recovered/Not Resolved]
  - Influenza [Unknown]
  - Drug ineffective [Unknown]
